FAERS Safety Report 21423001 (Version 3)
Quarter: 2022Q4

REPORT INFORMATION
  Report Type: Spontaneous
  Country: US (occurrence: US)
  Receive Date: 20221007
  Receipt Date: 20221013
  Transmission Date: 20230113
  Serious: No
  Sender: FDA-Public Use
  Company Number: US-MYLANLABS-2022M1047065

PATIENT

DRUGS (1)
  1. OCTREOTIDE ACETATE [Suspect]
     Active Substance: OCTREOTIDE ACETATE
     Indication: Product used for unknown indication
     Dosage: 500 MICROGRAM PER MILLILITRE
     Route: 065

REACTIONS (3)
  - Product deposit [None]
  - Syringe issue [None]
  - Product quality issue [None]

NARRATIVE: CASE EVENT DATE: 20220610
